FAERS Safety Report 6936355-3 (Version None)
Quarter: 2010Q3

REPORT INFORMATION
  Report Type: 
  Country: None (occurrence: None)
  Receive Date: 20100823
  Receipt Date: 20100811
  Transmission Date: 20110219
  Serious: Yes (Hospitalization)
  Sender: FDA-Public Use
  Company Number: FR-PFIZER INC-2010100810

PATIENT
  Age: 21 Month
  Sex: Male
  Weight: 12.8 kg

DRUGS (4)
  1. ADRIBLASTINE [Suspect]
     Dosage: 30 MG/M2, CYCLIC
     Route: 042
     Dates: start: 20100313, end: 20100315
  2. HOLOXAN [Suspect]
     Dosage: 1.6 G, CYCLIC
     Route: 042
     Dates: start: 20100313, end: 20100315
  3. VINCRISTINE [Suspect]
     Dosage: 1.5 MG/M2, CYCLIC
     Route: 042
     Dates: start: 20100313, end: 20100313
  4. ACTINOMYCIN D [Suspect]
     Dosage: 1.5 MG/M2, CYCLIC
     Route: 042
     Dates: start: 20100313, end: 20100313

REACTIONS (3)
  - AGRANULOCYTOSIS [None]
  - ENCEPHALOPATHY [None]
  - RENAL TUBULAR DISORDER [None]
